FAERS Safety Report 21855566 (Version 2)
Quarter: 2023Q1

REPORT INFORMATION
  Report Type: Spontaneous
  Country: JP (occurrence: JP)
  Receive Date: 20230112
  Receipt Date: 20230118
  Transmission Date: 20230417
  Serious: No
  Sender: FDA-Public Use
  Company Number: JP-KYOWAKIRIN-2023AKK000062

PATIENT
  Age: 38 Year
  Sex: Male

DRUGS (9)
  1. FILGRASTIM [Suspect]
     Active Substance: FILGRASTIM
     Indication: Peripheral blood stem cell apheresis
     Dosage: 200 UG/M2, QD
     Route: 065
  2. FILGRASTIM [Suspect]
     Active Substance: FILGRASTIM
     Dosage: 400 UG/M2, QD
     Route: 065
  3. FILGRASTIM [Suspect]
     Active Substance: FILGRASTIM
     Dosage: 200 UG,DIVIDED INTO TWO DOSES
     Route: 065
  4. RITUXAN [Suspect]
     Active Substance: RITUXIMAB
     Indication: Diffuse large B-cell lymphoma
     Dosage: UNK
     Route: 065
  5. IFOSFAMIDE [Suspect]
     Active Substance: IFOSFAMIDE
     Indication: Diffuse large B-cell lymphoma
     Dosage: UNK
     Route: 065
  6. DEXAMETHASONE [Suspect]
     Active Substance: DEXAMETHASONE
     Indication: Diffuse large B-cell lymphoma
     Dosage: UNK
     Route: 065
  7. ETOPOSIDE [Suspect]
     Active Substance: ETOPOSIDE
     Indication: Diffuse large B-cell lymphoma
     Dosage: UNK
     Route: 065
  8. CYTARABINE [Suspect]
     Active Substance: CYTARABINE
     Indication: Diffuse large B-cell lymphoma
     Dosage: UNK
     Route: 065
  9. PLERIXAFOR [Concomitant]
     Active Substance: PLERIXAFOR
     Indication: Peripheral blood stem cell apheresis
     Dosage: UNK
     Route: 065

REACTIONS (1)
  - No adverse event [Unknown]
